FAERS Safety Report 5333161-0 (Version None)
Quarter: 2007Q2

REPORT INFORMATION
  Report Type: 
  Country: None (occurrence: None)
  Receive Date: 20070524
  Receipt Date: 20070516
  Transmission Date: 20071010
  Serious: Yes (Other)
  Sender: FDA-Public Use
  Company Number: PHHO2007BE00523

PATIENT
  Age: 56 Year
  Sex: Female

DRUGS (6)
  1. FEMARA [Suspect]
     Indication: BREAST CANCER
     Dosage: 2.5 MG, QD
     Route: 048
     Dates: start: 20030630
  2. ZOLEDRONIC ACID [Suspect]
     Dosage: 4 MG, EVERY 6 MONTHS
     Route: 042
     Dates: start: 20030630
  3. INDERAL [Concomitant]
     Indication: HYPERTENSION
  4. MOTENS [Concomitant]
     Indication: HYPERTENSION
  5. BETASERC [Concomitant]
     Indication: DIZZINESS
  6. ACCUPRIL [Concomitant]
     Indication: HYPERTENSION

REACTIONS (6)
  - DENTAL CARIES [None]
  - ERYTHEMA [None]
  - OSTEONECROSIS [None]
  - PAIN IN JAW [None]
  - SWELLING [None]
  - TOOTH EXTRACTION [None]
